FAERS Safety Report 7505958-X (Version None)
Quarter: 2011Q2

REPORT INFORMATION
  Report Type: 
  Country: None (occurrence: None)
  Receive Date: 20110526
  Receipt Date: 20110517
  Transmission Date: 20111010
  Serious: Yes (Hospitalization, Other)
  Sender: FDA-Public Use
  Company Number: FI-ROCHE-774687

PATIENT
  Age: 70 Year
  Sex: Male

DRUGS (5)
  1. XELODA [Suspect]
     Dosage: 2+4 TABLETS
     Route: 048
     Dates: start: 20110425, end: 20110428
  2. AMLODIPINE [Concomitant]
     Indication: HYPERTENSION
     Route: 048
     Dates: start: 20070701
  3. SIMVASTATIN [Concomitant]
     Route: 048
     Dates: start: 20070701, end: 20110430
  4. CALCICHEW [Concomitant]
     Route: 048
  5. APURIN [Concomitant]
     Indication: GOUT
     Route: 048
     Dates: start: 19950101, end: 20110509

REACTIONS (4)
  - POLYNEUROPATHY [None]
  - LEUKOCYTOSIS [None]
  - HYPOREFLEXIA [None]
  - MUSCULAR WEAKNESS [None]
